FAERS Safety Report 7138281-6 (Version None)
Quarter: 2010Q4

REPORT INFORMATION
  Report Type: 
  Country: None (occurrence: None)
  Receive Date: 20101104
  Receipt Date: 20091023
  Transmission Date: 20110411
  Serious: Yes (Hospitalization, Other)
  Sender: FDA-Public Use
  Company Number: US-WYE-H11816109

PATIENT
  Age: 44 Year
  Sex: Male
  Weight: 77.1 kg

DRUGS (3)
  1. ZOSYN [Suspect]
     Indication: ABDOMINAL ABSCESS
     Dosage: 4.5 G 1X PER 8 HR, INTRAVENOUS
     Route: 042
     Dates: start: 20091007, end: 20091011
  2. LISINOPRIL [Concomitant]
  3. VANCOMYCIN [Concomitant]

REACTIONS (1)
  - TUBULOINTERSTITIAL NEPHRITIS [None]
